FAERS Safety Report 24948897 (Version 1)
Quarter: 2025Q1

REPORT INFORMATION
  Report Type: Spontaneous
  Country: US (occurrence: US)
  Receive Date: 20250210
  Receipt Date: 20250210
  Transmission Date: 20250409
  Serious: Yes (Other)
  Sender: VERICEL
  Company Number: US-VERICEL-US-VCEL-25-000024

PATIENT
  Age: 18 Year
  Sex: Female

DRUGS (1)
  1. MACI [Suspect]
     Active Substance: AUTOLOGOUS CULTURED CHONDROCYTES\SUS SCROFA COLLAGEN
     Indication: Joint injury
     Route: 050
     Dates: start: 20241231, end: 20241231

REACTIONS (2)
  - Arthritis infective [Unknown]
  - Post procedural infection [Unknown]

NARRATIVE: CASE EVENT DATE: 20250101
